FAERS Safety Report 9937062 (Version 1)
Quarter: 2014Q1

REPORT INFORMATION
  Report Type: Spontaneous
  Country: US (occurrence: None)
  Receive Date: 20140122
  Receipt Date: 20140122
  Transmission Date: 20141002
  Serious: No
  Sender: FDA-Public Use
  Company Number: AP356-00300-SPO-US

PATIENT
  Age: 47 Year
  Sex: Female
  Weight: 77 kg

DRUGS (6)
  1. BELVIQ [Suspect]
     Indication: WEIGHT CONTROL
     Route: 048
     Dates: start: 20131119, end: 20131120
  2. ALPRAZOLAM (ALPRAZOLAM) [Concomitant]
  3. SIMVASTATIN (SIMVASTATIN) [Concomitant]
  4. ATENOLOL (ATENOLOL) [Concomitant]
  5. ESTRADIOL (ESTRADIOL) (GEL) [Concomitant]
  6. SYNTHROID (LEVOTHYROXINE SODIUM) [Concomitant]

REACTIONS (12)
  - Arthralgia [None]
  - Dysarthria [None]
  - Gait disturbance [None]
  - Ear pruritus [None]
  - Skin plaque [None]
  - Rash pruritic [None]
  - Dizziness [None]
  - Nasopharyngitis [None]
  - Memory impairment [None]
  - Fatigue [None]
  - Increased appetite [None]
  - Drug ineffective [None]
